FAERS Safety Report 7996702-0 (Version None)
Quarter: 2011Q4

REPORT INFORMATION
  Report Type: 
  Country: None (occurrence: None)
  Receive Date: 20111221
  Receipt Date: 20111208
  Transmission Date: 20120403
  Serious: Yes (Hospitalization, Other)
  Sender: FDA-Public Use
  Company Number: US-ELI_LILLY_AND_COMPANY-US201106004586

PATIENT
  Sex: Female

DRUGS (16)
  1. FORTEO [Suspect]
     Indication: OSTEOPOROSIS
     Dosage: 20 UG, QD
     Route: 065
     Dates: start: 20110401
  2. NITROGLYCERIN [Concomitant]
  3. VITAMIN D [Concomitant]
     Dosage: 5000 IU, UNK
  4. XYZAL [Concomitant]
  5. MIRAPEX [Concomitant]
  6. VITAMIN D [Concomitant]
     Dosage: 2500 IU, UNK
  7. FORTEO [Suspect]
     Dosage: 20 UG, QD
     Route: 065
  8. FORTEO [Suspect]
     Dosage: 20 UG, QD
     Route: 065
  9. LEVOTHYROXINE SODIUM [Concomitant]
  10. TRAVATAN [Concomitant]
  11. AMLODIPINE [Concomitant]
  12. ATENOLOL [Concomitant]
  13. DIGOXIN [Concomitant]
  14. LISINOPRIL [Concomitant]
  15. NEXIUM [Concomitant]
  16. HYDROCORTISONE [Concomitant]

REACTIONS (11)
  - FALL [None]
  - HAND FRACTURE [None]
  - DIZZINESS [None]
  - CARDIAC FIBRILLATION [None]
  - HEART RATE DECREASED [None]
  - CHEST PAIN [None]
  - OEDEMA PERIPHERAL [None]
  - INJECTION SITE PAIN [None]
  - VISUAL IMPAIRMENT [None]
  - HEART RATE INCREASED [None]
  - HYPERHIDROSIS [None]
